FAERS Safety Report 5595042-7 (Version None)
Quarter: 2008Q1

REPORT INFORMATION
  Report Type: 
  Country: None (occurrence: None)
  Receive Date: 20080117
  Receipt Date: 20080107
  Transmission Date: 20080703
  Serious: Yes (Hospitalization)
  Sender: FDA-Public Use
  Company Number: AU-ALLERGAN-0800536US

PATIENT

DRUGS (2)
  1. BOTULINUM TOXIN TYPE A - GENERAL [Suspect]
     Indication: CEREBRAL PALSY
     Dosage: UNK, SINGLE
     Route: 030
  2. BOTULINUM TOXIN TYPE A - GENERAL [Suspect]
     Indication: MUSCLE SPASTICITY

REACTIONS (1)
  - RESPIRATORY TRACT INFECTION [None]
